FAERS Safety Report 16225624 (Version 1)
Quarter: 2019Q2

REPORT INFORMATION
  Report Type: Spontaneous
  Country: RO (occurrence: RO)
  Receive Date: 20190422
  Receipt Date: 20190422
  Transmission Date: 20190711
  Serious: Yes (Hospitalization)
  Sender: FDA-Public Use
  Company Number: RO-TEVA-2019-RO-1040285

PATIENT
  Age: 58 Year
  Sex: Male
  Weight: 76 kg

DRUGS (9)
  1. METHOTREXATE. [Suspect]
     Active Substance: METHOTREXATE
     Indication: ANKYLOSING SPONDYLITIS
     Dosage: 15 MG/WEEK
     Route: 048
     Dates: start: 20171116, end: 20181018
  2. SULFASALAZIN EN [Concomitant]
     Indication: ANKYLOSING SPONDYLITIS
     Route: 048
     Dates: start: 20171116
  3. PRESTARIUM 5 MG [Concomitant]
     Indication: HYPERTENSION
     Route: 048
     Dates: start: 20180307
  4. TRAMADOL EEL [Concomitant]
     Indication: ANKYLOSING SPONDYLITIS
     Dosage: 1 TABLET WHEN NEEDED, MAXIMUM 30 TABLETS/MONTH
     Route: 048
     Dates: start: 20170221
  5. CARBAMAZEPINA [Concomitant]
     Active Substance: CARBAMAZEPINE
     Indication: SIMPLE PARTIAL SEIZURES
     Route: 048
     Dates: start: 20180307
  6. CORYOL 6,25 MG [Concomitant]
     Indication: HYPERTENSION
     Dosage: 1/2 TABLET X 2/DAY
     Route: 048
     Dates: start: 20180307
  7. VIMOVO 500 MG/20 MG [Concomitant]
     Indication: ANKYLOSING SPONDYLITIS
     Dosage: 1 TABLET WHEN NEEDED, MAXIMUM 20 TABLETS/MONTH
     Route: 048
     Dates: start: 20171116
  8. CAVINTON FORTE 10MG [Concomitant]
     Indication: CEREBROVASCULAR ACCIDENT
     Route: 048
     Dates: start: 20180307
  9. TROMBEX 75 MG [Concomitant]
     Indication: CEREBROVASCULAR ACCIDENT
     Dosage: 75 MILLIGRAM DAILY;
     Route: 048
     Dates: start: 20170307

REACTIONS (1)
  - Arthritis bacterial [Recovered/Resolved]

NARRATIVE: CASE EVENT DATE: 20181018
